FAERS Safety Report 8184377-X (Version None)
Quarter: 2012Q1

REPORT INFORMATION
  Report Type: 
  Country: None (occurrence: None)
  Receive Date: 20120305
  Receipt Date: 20120302
  Transmission Date: 20120608
  Serious: Yes (Other)
  Sender: FDA-Public Use
  Company Number: NL-JNJFOC-20120301275

PATIENT
  Sex: Female

DRUGS (3)
  1. NICOTINE [Suspect]
     Indication: SMOKING CESSATION THERAPY
     Dosage: FOUR TO TEN A DAY DEPENDING ON STRESS LEVELS, FOR THREE YEARS
     Route: 048
     Dates: start: 20090101
  2. NICOTINE [Suspect]
     Indication: SMOKING CESSATION THERAPY
     Dosage: FOUR TO TEN A DAY DEPENDING ON STRESS LEVELS
     Route: 055
  3. NICOTINE [Suspect]
     Indication: SMOKING CESSATION THERAPY
     Dosage: FOUR TO TEN A DAY DEPENDING ON STRESS LEVELS, FOR THREE YEARS
     Route: 048
     Dates: start: 20090101

REACTIONS (2)
  - INTENTIONAL DRUG MISUSE [None]
  - DRUG DEPENDENCE [None]
